FAERS Safety Report 23730182 (Version 1)
Quarter: 2024Q2

REPORT INFORMATION
  Report Type: Spontaneous
  Country: US (occurrence: US)
  Receive Date: 20240411
  Receipt Date: 20240411
  Transmission Date: 20240716
  Serious: No
  Sender: FDA-Public Use
  Company Number: US-BAUSCHBL-2024BNL004292

PATIENT
  Age: 84 Year
  Sex: Female

DRUGS (3)
  1. LUMIFY [Suspect]
     Active Substance: BRIMONIDINE TARTRATE
     Indication: Routine health maintenance
     Route: 047
     Dates: start: 20240403
  2. LUMIFY [Suspect]
     Active Substance: BRIMONIDINE TARTRATE
  3. SYSTANE (HYPROMELLOSE 2910 (4000 MPA.S)) [Concomitant]
     Active Substance: HYPROMELLOSE 2910 (4000 MPA.S)
     Indication: Product used for unknown indication
     Route: 065

REACTIONS (1)
  - Burning sensation [Recovered/Resolved]

NARRATIVE: CASE EVENT DATE: 20240401
